FAERS Safety Report 14236118 (Version 1)
Quarter: 2017Q4

REPORT INFORMATION
  Report Type: Report from Study
  Country: US (occurrence: US)
  Receive Date: 20171129
  Receipt Date: 20171129
  Transmission Date: 20180321
  Serious: Yes (Other)
  Sender: FDA-Public Use
  Company Number: US-AUROBINDO-AUR-APL-2017-43774

PATIENT
  Age: 11 Year
  Sex: Male

DRUGS (3)
  1. CLOPIDOGREL [Suspect]
     Active Substance: CLOPIDOGREL BISULFATE
     Indication: KAWASAKI^S DISEASE
     Route: 065
  2. ASPIRIN                            /00002701/ [Suspect]
     Active Substance: ASPIRIN
     Indication: KAWASAKI^S DISEASE
     Route: 065
  3. WARFARIN [Suspect]
     Active Substance: WARFARIN
     Indication: KAWASAKI^S DISEASE
     Dosage: UNK
     Route: 065

REACTIONS (3)
  - Epistaxis [Unknown]
  - Coronary artery occlusion [Unknown]
  - Anaemia [Unknown]
